FAERS Safety Report 19475677 (Version 1)
Quarter: 2021Q2

REPORT INFORMATION
  Report Type: Spontaneous
  Country: CN (occurrence: CN)
  Receive Date: 20210629
  Receipt Date: 20210629
  Transmission Date: 20210717
  Serious: Yes (Other)
  Sender: FDA-Public Use
  Company Number: CN-009507513-2106CHN006998

PATIENT
  Age: 41 Year
  Sex: Female

DRUGS (5)
  1. CISPLATIN. [Concomitant]
     Active Substance: CISPLATIN
     Indication: VULVAL CANCER
     Dosage: 100 MILLIGRAM
     Dates: start: 2019
  2. PEMBROLIZUMAB. [Suspect]
     Active Substance: PEMBROLIZUMAB
     Indication: VULVAL CANCER
     Dosage: 100 MILLIGRAM
     Dates: start: 2019
  3. DOCETAXEL. [Concomitant]
     Active Substance: DOCETAXEL
     Indication: VULVAL CANCER
     Dosage: 90 MILLIGRAM
     Dates: start: 2019
  4. CARBOPLATIN. [Concomitant]
     Active Substance: CARBOPLATIN
     Indication: VULVAL CANCER
     Dosage: 500 MILLIGRAM
     Dates: start: 2019
  5. PACLITAXEL ALBUMIN [Concomitant]
     Active Substance: PACLITAXEL
     Indication: VULVAL CANCER
     Dosage: 300 MILLIGRAM
     Dates: start: 2019

REACTIONS (2)
  - Immune-mediated arthritis [Recovering/Resolving]
  - Product use in unapproved indication [Unknown]

NARRATIVE: CASE EVENT DATE: 2019
